FAERS Safety Report 8827387 (Version 2)
Quarter: 2012Q4

REPORT INFORMATION
  Report Type: 
  Country: BE (occurrence: BE)
  Receive Date: 20121008
  Receipt Date: 20121012
  Transmission Date: 20130627
  Serious: Yes (Other)
  Sender: FDA-Public Use
  Company Number: BE-009507513-1209BEL003865

PATIENT
  Age: 50 Year
  Sex: Female
  Weight: 65 kg

DRUGS (7)
  1. PEGINTRON [Suspect]
     Indication: HEPATITIS C
     Dosage: 80 Microgram, qw
     Dates: start: 20120904
  2. REBETOL [Suspect]
     Indication: HEPATITIS C
     Dosage: 800 mg, bid
     Route: 048
     Dates: start: 20120904
  3. VICTRELIS [Suspect]
     Dosage: 2400 mg, qd
     Route: 048
     Dates: start: 20120928
  4. ELTHYRONE [Concomitant]
     Dosage: 25 Microgram, qd
  5. SIPRALEXA [Concomitant]
     Dosage: 0.5 DF, UNK
  6. LORMETAZEPAM [Concomitant]
  7. XANAX [Concomitant]
     Dosage: 0.25 mg, tid

REACTIONS (7)
  - Chest pain [Recovered/Resolved]
  - Drug withdrawal syndrome [Recovered/Resolved]
  - Anxiety [Recovered/Resolved]
  - Sensation of heaviness [Recovered/Resolved]
  - Sensation of heaviness [Recovered/Resolved]
  - Intercostal neuralgia [Recovered/Resolved]
  - Chills [Recovered/Resolved]
